FAERS Safety Report 4381276-6 (Version None)
Quarter: 2004Q2

REPORT INFORMATION
  Report Type: 
  Country: None (occurrence: None)
  Receive Date: 20040616
  Receipt Date: 20040610
  Transmission Date: 20050107
  Serious: Yes (Hospitalization)
  Sender: FDA-Public Use
  Company Number: 8177

PATIENT
  Age: 55 Year
  Sex: Male

DRUGS (4)
  1. LEUCOVORIN [Suspect]
     Indication: COLORECTAL CANCER METASTATIC
     Dates: start: 20030917, end: 20040127
  2. FLUOROURACIL [Suspect]
     Indication: COLORECTAL CANCER METASTATIC
     Dates: start: 20030917, end: 20040127
  3. OXALIPLATIN [Suspect]
     Indication: COLORECTAL CANCER METASTATIC
     Dates: start: 20030917, end: 20040127
  4. PLACEBO VS STUDY MEDICATION [Concomitant]

REACTIONS (1)
  - FEBRILE NEUTROPENIA [None]
